FAERS Safety Report 9302729 (Version 2)
Quarter: 2013Q2

REPORT INFORMATION
  Report Type: Report from Study
  Country: ES (occurrence: ES)
  Receive Date: 20130522
  Receipt Date: 20130527
  Transmission Date: 20140414
  Serious: Yes (Death, Hospitalization)
  Sender: FDA-Public Use
  Company Number: PHHO2013ES006637

PATIENT
  Age: 65 Year
  Sex: Female
  Weight: 47 kg

DRUGS (2)
  1. CGP 57148B [Suspect]
     Indication: PULMONARY ARTERIAL HYPERTENSION
     Dosage: 200 - 400 MG
     Route: 048
     Dates: start: 20100616, end: 20101126
  2. EPOPROSTENOL [Concomitant]
     Dosage: 14 NG/KG/MIN

REACTIONS (1)
  - Right ventricular failure [Fatal]
